FAERS Safety Report 11748910 (Version 2)
Quarter: 2015Q4

REPORT INFORMATION
  Report Type: Spontaneous
  Country: US (occurrence: US)
  Receive Date: 20151118
  Receipt Date: 20151228
  Transmission Date: 20160304
  Serious: Yes (Other)
  Sender: FDA-Public Use
  Company Number: US-AVANIR PHARMACEUTICLAS-2015NUEUSA00817

PATIENT

DRUGS (2)
  1. NUEDEXTA [Suspect]
     Active Substance: DEXTROMETHORPHAN HYDROBROMIDE\QUINIDINE SULFATE
     Indication: AFFECT LABILITY
     Dosage: 1 CAP, Q12 HRS
     Route: 048
     Dates: start: 20151014, end: 20151105
  2. COUMADIN [Suspect]
     Active Substance: WARFARIN SODIUM
     Indication: PRODUCT USED FOR UNKNOWN INDICATION
     Dosage: UNK

REACTIONS (10)
  - Balance disorder [Recovering/Resolving]
  - International normalised ratio increased [Recovered/Resolved]
  - Daydreaming [Recovered/Resolved]
  - Mental status changes [Unknown]
  - Choking [Recovered/Resolved]
  - Hypersomnia [Recovered/Resolved]
  - Feeling abnormal [None]
  - Blood urine present [Recovered/Resolved]
  - Fall [Recovered/Resolved]
  - Dizziness [Recovering/Resolving]

NARRATIVE: CASE EVENT DATE: 201510
